FAERS Safety Report 8424623-8 (Version None)
Quarter: 2012Q2

REPORT INFORMATION
  Report Type: 
  Country: None (occurrence: None)
  Receive Date: 20120611
  Receipt Date: 20120529
  Transmission Date: 20120825
  Serious: No
  Sender: FDA-Public Use
  Company Number: US-ASTRAZENECA-2011SE41530

PATIENT
  Age: 62 Year
  Sex: Female

DRUGS (2)
  1. CALCIUM SUPPLIMENT [Concomitant]
     Route: 065
     Dates: start: 20100101
  2. NEXIUM [Suspect]
     Dosage: TWICE A DAY
     Route: 048
     Dates: start: 20010101

REACTIONS (5)
  - FOOT FRACTURE [None]
  - HAND FRACTURE [None]
  - OSTEOPOROSIS [None]
  - MULTIPLE FRACTURES [None]
  - UPPER LIMB FRACTURE [None]
